FAERS Safety Report 6307951-1 (Version None)
Quarter: 2009Q3

REPORT INFORMATION
  Report Type: 
  Country: None (occurrence: None)
  Receive Date: 20090813
  Receipt Date: 20090804
  Transmission Date: 20100115
  Serious: Yes (Other)
  Sender: FDA-Public Use
  Company Number: US-JNJFOC-20090801801

PATIENT
  Sex: Female
  Weight: 46.27 kg

DRUGS (3)
  1. INVEGA [Suspect]
     Route: 048
  2. INVEGA [Suspect]
     Indication: SCHIZOAFFECTIVE DISORDER
     Route: 048
  3. VALIUM [Concomitant]
     Indication: BIPOLAR I DISORDER
     Route: 048

REACTIONS (3)
  - DELUSION [None]
  - HALLUCINATION [None]
  - WEIGHT DECREASED [None]
